FAERS Safety Report 9801739 (Version 2)
Quarter: 2014Q1

REPORT INFORMATION
  Report Type: Spontaneous
  Country: US (occurrence: US)
  Receive Date: 20140107
  Receipt Date: 20140116
  Transmission Date: 20141002
  Serious: Yes (Hospitalization, Other)
  Sender: FDA-Public Use
  Company Number: US-BAYER-2014-001574

PATIENT
  Age: 32 Year
  Sex: Female

DRUGS (1)
  1. BETASERON [Suspect]
     Indication: RELAPSING-REMITTING MULTIPLE SCLEROSIS
     Dosage: UNK
     Dates: end: 201312

REACTIONS (8)
  - Injury [None]
  - Cardiac infection [None]
  - Arthritis infective [None]
  - Fungaemia [None]
  - Arthralgia [None]
  - Pain in extremity [None]
  - Joint swelling [None]
  - Local swelling [None]
